FAERS Safety Report 4319417-9 (Version None)
Quarter: 2004Q1

REPORT INFORMATION
  Report Type: 
  Country: None (occurrence: None)
  Receive Date: 20040316
  Receipt Date: 20040303
  Transmission Date: 20041129
  Serious: Yes (Life-Threatening, Hospitalization)
  Sender: FDA-Public Use
  Company Number: WAES 01061351

PATIENT
  Age: 64 Year
  Sex: Female
  Weight: 39.9165 kg

DRUGS (4)
  1. ZOCOR [Suspect]
     Indication: ANGINA UNSTABLE
     Dosage: SEE IMAGE
     Route: 048
     Dates: start: 20000610, end: 20000701
  2. ZOCOR [Suspect]
     Indication: ANGINA UNSTABLE
     Dosage: SEE IMAGE
     Route: 048
     Dates: start: 20000701, end: 20010607
  3. ISOSORBIDE MONONITRATE [Concomitant]
  4. METOPROLOL [Concomitant]

REACTIONS (3)
  - ACUTE CORONARY SYNDROME [None]
  - CORONARY ARTERY DISEASE [None]
  - DRUG INEFFECTIVE [None]
